FAERS Safety Report 7245330-3 (Version None)
Quarter: 2011Q1

REPORT INFORMATION
  Report Type: 
  Country: None (occurrence: None)
  Receive Date: 20110126
  Receipt Date: 20101224
  Transmission Date: 20110831
  Serious: Yes (Death, Hospitalization, Other)
  Sender: FDA-Public Use
  Company Number: FR-CELGENEUS-056-C5013-10102042

PATIENT
  Sex: Female
  Weight: 41 kg

DRUGS (8)
  1. FENOFIBRATE [Concomitant]
     Route: 048
     Dates: start: 20081203
  2. EFFERALGAN CODEINE [Concomitant]
     Route: 048
     Dates: start: 20070320
  3. ASPEGIC 325 [Concomitant]
     Indication: THROMBOSIS PROPHYLAXIS
     Route: 048
     Dates: start: 20090901
  4. MACROGOL [Concomitant]
     Indication: CONSTIPATION PROPHYLAXIS
     Dosage: UNITS
     Route: 048
     Dates: start: 20101001
  5. CC-5013 [Suspect]
     Indication: MULTIPLE MYELOMA
     Route: 048
     Dates: start: 20101001, end: 20101019
  6. DEXAMETHASONE [Suspect]
     Indication: MULTIPLE MYELOMA
     Route: 065
     Dates: start: 20101001, end: 20101019
  7. RILMENIDINE [Concomitant]
     Route: 048
     Dates: start: 20081201
  8. FORTIMEL [Concomitant]
     Indication: PROPHYLAXIS
     Dosage: UNIT
     Route: 048
     Dates: start: 20101001

REACTIONS (1)
  - MENINGOCOCCAL SEPSIS [None]
